FAERS Safety Report 7409511-8 (Version None)
Quarter: 2011Q2

REPORT INFORMATION
  Report Type: 
  Country: None (occurrence: None)
  Receive Date: 20110412
  Receipt Date: 20110330
  Transmission Date: 20111010
  Serious: Yes (Other)
  Sender: FDA-Public Use
  Company Number: PHHY2011CA27431

PATIENT
  Sex: Male

DRUGS (1)
  1. CLOZARIL [Suspect]
     Indication: SCHIZOPHRENIA
     Dates: start: 20110324, end: 20110328

REACTIONS (1)
  - ELECTROCARDIOGRAM QT PROLONGED [None]
